FAERS Safety Report 26198050 (Version 2)
Quarter: 2025Q4

REPORT INFORMATION
  Report Type: Other
  Country: US (occurrence: US)
  Receive Date: 20251224
  Receipt Date: 20251224
  Transmission Date: 20260117
  Serious: No
  Sender: TRAVERE THERAPEUTICS
  Company Number: US-TRAVERE-2025TVT02372

PATIENT
  Age: 61 Year
  Sex: Male

DRUGS (10)
  1. FILSPARI [Suspect]
     Active Substance: SPARSENTAN
     Indication: Proteinuria
     Route: 048
  2. FILSPARI [Suspect]
     Active Substance: SPARSENTAN
     Indication: Focal segmental glomerulosclerosis
  3. NIFEDIPINE [Concomitant]
     Active Substance: NIFEDIPINE
  4. GABAPENTIN [Concomitant]
     Active Substance: GABAPENTIN
  5. TACROLIMUS [Concomitant]
     Active Substance: TACROLIMUS
  6. VITAMINS [Concomitant]
     Active Substance: VITAMINS
  7. FLOMAX [Concomitant]
     Active Substance: TAMSULOSIN HYDROCHLORIDE
  8. OMEPRAZOLE [Concomitant]
     Active Substance: OMEPRAZOLE
  9. VELTASSA [Concomitant]
     Active Substance: PATIROMER
  10. ATORVASTATIN [Concomitant]
     Active Substance: ATORVASTATIN

REACTIONS (1)
  - Off label use [Unknown]
